FAERS Safety Report 7509184-X (Version None)
Quarter: 2011Q2

REPORT INFORMATION
  Report Type: 
  Country: None (occurrence: None)
  Receive Date: 20110527
  Receipt Date: 20110215
  Transmission Date: 20111010
  Serious: No
  Sender: FDA-Public Use
  Company Number: US-MYLANLABS-2011S1002953

PATIENT
  Age: 62 Year
  Sex: Female

DRUGS (7)
  1. DOXEPIN [Concomitant]
     Indication: DEPRESSION
     Route: 048
  2. AMITRIPTYLINE HCL [Suspect]
     Indication: MIGRAINE
     Route: 048
     Dates: start: 20101201, end: 20110101
  3. AMITRIPTYLINE HCL [Suspect]
     Route: 048
     Dates: start: 20110201, end: 20110207
  4. ALLOPURINOL [Concomitant]
     Indication: BLOOD PRESSURE
     Route: 048
  5. ATENOLOL [Concomitant]
     Indication: BLOOD PRESSURE
     Route: 048
  6. EYE DROPS [Concomitant]
     Indication: CORNEAL ABRASION
     Dosage: AUTOLOGOUS SERUM EYE DROPS NOT LISTEED IN AERS
     Dates: start: 20100101
  7. CLOTRIMAZOLE [Concomitant]
     Indication: CANDIDIASIS
     Route: 048
     Dates: start: 20110101

REACTIONS (4)
  - CANDIDIASIS [None]
  - OROPHARYNGEAL PAIN [None]
  - PHARYNGITIS [None]
  - DRY MOUTH [None]
